FAERS Safety Report 8345564-0 (Version None)
Quarter: 2012Q2

REPORT INFORMATION
  Report Type: 
  Country: None (occurrence: None)
  Receive Date: 20120508
  Receipt Date: 20120423
  Transmission Date: 20120825
  Serious: Yes (Disabling)
  Sender: FDA-Public Use
  Company Number: FI-WATSON-2012-03090

PATIENT
  Sex: Female

DRUGS (9)
  1. ZOLPIDEM TARTRATE [Concomitant]
     Indication: PRODUCT USED FOR UNKNOWN INDICATION
     Dosage: WHEN REQUIRED, 10 MG, 0.5 TO 1/DAY
     Route: 048
  2. EMCONCOR CHF [Concomitant]
     Indication: PRODUCT USED FOR UNKNOWN INDICATION
     Dosage: 2.5 MG (2.5 MG, 1 IN 1 D)
     Route: 048
  3. ORMOX [Concomitant]
     Indication: PRODUCT USED FOR UNKNOWN INDICATION
     Dosage: 40 MG (20 MG, 2 IN 1 D)
     Route: 048
  4. PRIMASPAN [Concomitant]
     Indication: PRODUCT USED FOR UNKNOWN INDICATION
     Dosage: 50 MG (50 MG, 1 IN 1 D)
     Route: 048
  5. OXYBUTYNIN [Suspect]
     Indication: POLLAKIURIA
     Dosage: 3.9MG/24HRS, 2 TIMES A WEEK (2 IN 1 W)
     Route: 062
     Dates: start: 20120131, end: 20120205
  6. FUROSEMIDE [Concomitant]
     Indication: PRODUCT USED FOR UNKNOWN INDICATION
     Dosage: 80 MG (40 MG, 2 IN 1 D)
     Route: 048
  7. NOVARSC [Concomitant]
     Indication: PRODUCT USED FOR UNKNOWN INDICATION
     Dosage: 10 MG (5 MG, 2 IN 1 D)
     Route: 048
  8. PARACETAMOL-RATIOPHARM [Concomitant]
     Indication: PRODUCT USED FOR UNKNOWN INDICATION
     Dosage: 500 MG, WHEN REQUIRED
     Route: 048
  9. DINIT [Concomitant]
     Indication: PRODUCT USED FOR UNKNOWN INDICATION
     Dosage: WHEN NEEDED, 1.25 MG
     Route: 048

REACTIONS (5)
  - VAGINAL MUCOSAL BLISTERING [None]
  - ANURIA [None]
  - VAGINAL LESION [None]
  - GENITAL PAIN [None]
  - BLISTER [None]
